FAERS Safety Report 10252285 (Version 1)
Quarter: 2014Q2

REPORT INFORMATION
  Report Type: Spontaneous
  Country: US (occurrence: US)
  Receive Date: 20140623
  Receipt Date: 20140623
  Transmission Date: 20141212
  Serious: No
  Sender: FDA-Public Use
  Company Number: US-PFIZER INC-2014166765

PATIENT
  Sex: Male

DRUGS (2)
  1. CELEBREX [Suspect]
     Indication: PAIN IN EXTREMITY
     Dosage: UNK
  2. CELEBREX [Suspect]
     Dosage: UNK
     Dates: start: 2014

REACTIONS (2)
  - Dizziness [Unknown]
  - Migraine [Unknown]
